FAERS Safety Report 6507611-8 (Version None)
Quarter: 2009Q4

REPORT INFORMATION
  Report Type: 
  Country: None (occurrence: None)
  Receive Date: 20091221
  Receipt Date: 20090608
  Transmission Date: 20100525
  Serious: No
  Sender: FDA-Public Use
  Company Number: US-BRISTOL-MYERS SQUIBB COMPANY-14653695

PATIENT
  Sex: Female

DRUGS (2)
  1. PRAVASTATIN SODIUM [Suspect]
     Dates: start: 20090501
  2. ORENCIA [Suspect]
     Dosage: FORM-INFUSION.
     Dates: start: 20080801

REACTIONS (1)
  - INFLUENZA LIKE ILLNESS [None]
